FAERS Safety Report 16707821 (Version 1)
Quarter: 2019Q3

REPORT INFORMATION
  Report Type: Spontaneous
  Country: US (occurrence: US)
  Receive Date: 20190815
  Receipt Date: 20190815
  Transmission Date: 20191004
  Serious: No
  Sender: FDA-Public Use
  Company Number: US-IMPAX LABORATORIES, LLC-2019-IPXL-01301

PATIENT
  Age: 6 Year
  Sex: Male
  Weight: 21 kg

DRUGS (1)
  1. METHYLPHENIDATE HYDROCHLORIDE. [Suspect]
     Active Substance: METHYLPHENIDATE HYDROCHLORIDE
     Indication: ATTENTION DEFICIT/HYPERACTIVITY DISORDER
     Dosage: 30 MILLIGRAM, 1 /DAY
     Route: 048
     Dates: start: 20190531, end: 20190621

REACTIONS (2)
  - Drug ineffective [Unknown]
  - Product physical issue [Unknown]

NARRATIVE: CASE EVENT DATE: 2019
